FAERS Safety Report 6504675-2 (Version None)
Quarter: 2009Q4

REPORT INFORMATION
  Report Type: 
  Country: None (occurrence: None)
  Receive Date: 20091218
  Receipt Date: 20091209
  Transmission Date: 20100525
  Serious: Yes (Hospitalization)
  Sender: FDA-Public Use
  Company Number: US-BIOGENIDEC-2009BI035662

PATIENT
  Age: 35 Year
  Sex: Female
  Weight: 58 kg

DRUGS (1)
  1. AVONEX [Suspect]
     Indication: MULTIPLE SCLEROSIS
     Route: 030
     Dates: start: 20030101, end: 20031201

REACTIONS (5)
  - DEHYDRATION [None]
  - INFLUENZA LIKE ILLNESS [None]
  - MIGRAINE [None]
  - ROAD TRAFFIC ACCIDENT [None]
  - VOMITING [None]
